FAERS Safety Report 8088336-7 (Version None)
Quarter: 2012Q1

REPORT INFORMATION
  Report Type: 
  Country: None (occurrence: None)
  Receive Date: 20120128
  Receipt Date: 20110428
  Transmission Date: 20120608
  Serious: No
  Sender: FDA-Public Use
  Company Number: US-ABBOTT-11P-163-0721362-00

PATIENT
  Sex: Male
  Weight: 63.56 kg

DRUGS (8)
  1. AZATHIOPRINE [Concomitant]
     Indication: COLITIS ULCERATIVE
  2. PRILOSEC [Concomitant]
  3. HUMIRA [Suspect]
     Indication: COLITIS ULCERATIVE
     Dates: start: 20110101
  4. MULTI-VITAMINS [Concomitant]
     Indication: VITAMIN SUPPLEMENTATION
     Dosage: 1 IN THE MORNING
  5. CETIRIZINE HCL [Concomitant]
     Indication: SEASONAL ALLERGY
     Dosage: ONCE IN THE MORNING
  6. PRILOSEC [Concomitant]
     Indication: ABDOMINAL PAIN UPPER
     Dosage: IN THE MORNING
  7. SINGULAIR [Concomitant]
     Indication: SEASONAL ALLERGY
     Dosage: IN THE EVENING
  8. FOLIC ACID [Concomitant]
     Indication: VITAMIN SUPPLEMENTATION

REACTIONS (7)
  - NAUSEA [None]
  - COLITIS [None]
  - HEADACHE [None]
  - FATIGUE [None]
  - FLANK PAIN [None]
  - COLITIS ULCERATIVE [None]
  - ABDOMINAL PAIN UPPER [None]
